FAERS Safety Report 7343065-X (Version None)
Quarter: 2011Q1

REPORT INFORMATION
  Report Type: 
  Country: None (occurrence: None)
  Receive Date: 20110302
  Receipt Date: 20110216
  Transmission Date: 20110831
  Serious: Yes (Other)
  Sender: FDA-Public Use
  Company Number: 2011S1000067

PATIENT
  Age: 1 Month
  Sex: Male
  Weight: 1.34 kg

DRUGS (6)
  1. NITRIC OXIDE [Suspect]
     Indication: PROPHYLAXIS
     Dosage: 20 PPM; CONT; INH, 10 PPM; CONT; INH, 5 PPM; CONT; INH
     Route: 055
     Dates: start: 20110113, end: 20110120
  2. NITRIC OXIDE [Suspect]
     Indication: BRONCHOPULMONARY DYSPLASIA
     Dosage: 20 PPM; CONT; INH, 10 PPM; CONT; INH, 5 PPM; CONT; INH
     Route: 055
     Dates: start: 20110113, end: 20110120
  3. NITRIC OXIDE [Suspect]
     Indication: PROPHYLAXIS
     Dosage: 20 PPM; CONT; INH, 10 PPM; CONT; INH, 5 PPM; CONT; INH
     Route: 055
     Dates: start: 20110120, end: 20110203
  4. NITRIC OXIDE [Suspect]
     Indication: BRONCHOPULMONARY DYSPLASIA
     Dosage: 20 PPM; CONT; INH, 10 PPM; CONT; INH, 5 PPM; CONT; INH
     Route: 055
     Dates: start: 20110120, end: 20110203
  5. NITRIC OXIDE [Suspect]
     Indication: PROPHYLAXIS
     Dosage: 20 PPM; CONT; INH, 10 PPM; CONT; INH, 5 PPM; CONT; INH
     Route: 055
     Dates: start: 20110110, end: 20110113
  6. NITRIC OXIDE [Suspect]
     Indication: BRONCHOPULMONARY DYSPLASIA
     Dosage: 20 PPM; CONT; INH, 10 PPM; CONT; INH, 5 PPM; CONT; INH
     Route: 055
     Dates: start: 20110110, end: 20110113

REACTIONS (9)
  - RESPIRATORY FAILURE [None]
  - NEUTROPENIA [None]
  - APNOEA [None]
  - PNEUMATOSIS [None]
  - NECROTISING COLITIS [None]
  - THROMBOCYTOPENIA [None]
  - SEPSIS [None]
  - VOMITING [None]
  - HYPOPERFUSION [None]
